FAERS Safety Report 8404689-1 (Version None)
Quarter: 2012Q2

REPORT INFORMATION
  Report Type: 
  Country: None (occurrence: None)
  Receive Date: 20120601
  Receipt Date: 20120523
  Transmission Date: 20120825
  Serious: Yes (Hospitalization)
  Sender: FDA-Public Use
  Company Number: BR-ASTRAZENECA-2012SE32147

PATIENT
  Age: 52 Year
  Sex: Female
  Weight: 68 kg

DRUGS (3)
  1. METOPROLOL SUCCINATE [Suspect]
     Indication: ARRHYTHMIA
     Route: 048
     Dates: start: 20120201
  2. LOSARTAN POTASSIUM [Concomitant]
     Route: 048
  3. ATENOLOL [Suspect]
     Indication: ARRHYTHMIA
     Route: 048
     Dates: start: 20100101, end: 20120201

REACTIONS (4)
  - DRUG INEFFECTIVE [None]
  - ANGINA PECTORIS [None]
  - INTENTIONAL DRUG MISUSE [None]
  - ARRHYTHMIA [None]
